FAERS Safety Report 5161119-3 (Version None)
Quarter: 2006Q4

REPORT INFORMATION
  Report Type: 
  Country: None (occurrence: None)
  Receive Date: 20061121
  Receipt Date: 20061117
  Transmission Date: 20070319
  Serious: No
  Sender: FDA-Public Use
  Company Number: STA-AE-05-MTX-021

PATIENT
  Age: 65 Year
  Sex: Female

DRUGS (8)
  1. METHOTREXATE [Suspect]
     Indication: RHEUMATOID ARTHRITIS
     Dosage: 15 MG - 1XW - ORAL
     Route: 048
     Dates: start: 20001101, end: 20050623
  2. ABATACEPT [Suspect]
     Indication: RHEUMATOID ARTHRITIS
     Dosage: 750 MG - IV
     Route: 042
     Dates: start: 20020522, end: 20050518
  3. FOLIC ACID [Concomitant]
  4. PREDNISOLONE [Concomitant]
  5. PERINDOPRIL ERBUMINE [Concomitant]
  6. ESCITALPRAM                (ESCITALOPRAM) [Concomitant]
  7. CALTRATE                 (CALCIUM CARBONATE) [Concomitant]
  8. ZANIDIP                    (LERCANIDIPINE HCL) [Concomitant]

REACTIONS (2)
  - BREAST CANCER FEMALE [None]
  - METASTASES TO LYMPH NODES [None]
